FAERS Safety Report 5953534-2 (Version None)
Quarter: 2008Q4

REPORT INFORMATION
  Report Type: 
  Country: None (occurrence: None)
  Receive Date: 20081114
  Receipt Date: 20081111
  Transmission Date: 20090506
  Serious: Yes (Other)
  Sender: FDA-Public Use
  Company Number: US-ASTRAZENECA-2008AC02924

PATIENT
  Age: 42 Month
  Sex: Female

DRUGS (1)
  1. PROPOFOL [Suspect]
     Indication: SEDATION
     Dosage: INDUCTION BOLUS ALONE OR AS A BOLUS FOLLOWED BY INFUSION

REACTIONS (2)
  - HICCUPS [None]
  - LARYNGOSPASM [None]
